FAERS Safety Report 4569276-4 (Version None)
Quarter: 2005Q1

REPORT INFORMATION
  Report Type: 
  Country: None (occurrence: None)
  Receive Date: 20050203
  Receipt Date: 20050125
  Transmission Date: 20050727
  Serious: Yes (Life-Threatening, Hospitalization, Other)
  Sender: FDA-Public Use
  Company Number: US-GLAXOSMITHKLINE-A0542086A

PATIENT
  Age: 78 Year
  Sex: Female
  Weight: 77 kg

DRUGS (1)
  1. ECOTRIN [Suspect]
     Indication: PAIN
     Route: 048
     Dates: start: 20030101

REACTIONS (7)
  - FLUID RETENTION [None]
  - HAEMORRHAGIC STROKE [None]
  - MIGRAINE [None]
  - VISION BLURRED [None]
  - VISUAL FIELD DEFECT [None]
  - WEIGHT DECREASED [None]
  - WEIGHT INCREASED [None]
